FAERS Safety Report 25003097 (Version 2)
Quarter: 2025Q1

REPORT INFORMATION
  Report Type: Report from Study
  Country: CA (occurrence: CA)
  Receive Date: 20250224
  Receipt Date: 20250307
  Transmission Date: 20250409
  Serious: Yes (Other)
  Sender: TAKEDA
  Company Number: CA-TAKEDA-2025TUS017734

PATIENT
  Age: 18 Year
  Sex: Female

DRUGS (6)
  1. VEDOLIZUMAB [Suspect]
     Active Substance: VEDOLIZUMAB
     Indication: Crohn^s disease
  2. VEDOLIZUMAB [Suspect]
     Active Substance: VEDOLIZUMAB
     Dosage: 300 MILLIGRAM, Q4WEEKS
     Dates: start: 20220519, end: 20250214
  3. MESALAMINE [Suspect]
     Active Substance: MESALAMINE
     Indication: Product used for unknown indication
  4. IRON [Concomitant]
     Active Substance: IRON
  5. Cortiment [Concomitant]
  6. Salofalk [Concomitant]

REACTIONS (4)
  - Renal failure [Unknown]
  - Drug ineffective [Unknown]
  - Off label use [Unknown]
  - Nephropathy [Unknown]

NARRATIVE: CASE EVENT DATE: 20220519
